FAERS Safety Report 6380730-5 (Version None)
Quarter: 2009Q3

REPORT INFORMATION
  Report Type: 
  Country: None (occurrence: None)
  Receive Date: 20090929
  Receipt Date: 20090916
  Transmission Date: 20100115
  Serious: Yes (Hospitalization)
  Sender: FDA-Public Use
  Company Number: GB-PFIZER INC-2007062962

PATIENT
  Age: 40 Year

DRUGS (7)
  1. SUNITINIB MALATE [Suspect]
     Indication: RENAL CELL CARCINOMA
     Dosage: 50 MG, UNK
     Route: 048
     Dates: start: 20060603, end: 20070807
  2. ALBUTEROL [Concomitant]
  3. BECOTIDE [Concomitant]
  4. CITALOPRAM [Concomitant]
     Route: 048
     Dates: start: 20060718
  5. ZOLEDRONIC ACID [Concomitant]
     Route: 042
     Dates: start: 20060701
  6. AMLODIPINE [Concomitant]
     Dates: start: 20060707
  7. LANSOPRAZOLE [Concomitant]

REACTIONS (4)
  - DYSPHAGIA [None]
  - LETHARGY [None]
  - NAUSEA [None]
  - VOMITING [None]
